FAERS Safety Report 25341765 (Version 1)
Quarter: 2025Q2

REPORT INFORMATION
  Report Type: Spontaneous
  Country: CN (occurrence: CN)
  Receive Date: 20250521
  Receipt Date: 20250521
  Transmission Date: 20250717
  Serious: Yes (Hospitalization, Disabling)
  Sender: NOVARTIS
  Company Number: CN-002147023-NVSC2025CN079333

PATIENT
  Age: 57 Year
  Sex: Female
  Weight: 60 kg

DRUGS (1)
  1. CARBAMAZEPINE [Suspect]
     Active Substance: CARBAMAZEPINE
     Indication: Pain in extremity
     Dosage: 0.200 G, BID
     Route: 048
     Dates: start: 20250417, end: 20250510

REACTIONS (6)
  - Drug eruption [Not Recovered/Not Resolved]
  - Pruritus [Unknown]
  - Erythema [Not Recovered/Not Resolved]
  - Swelling face [Unknown]
  - Pyrexia [Recovering/Resolving]
  - Off label use [Unknown]

NARRATIVE: CASE EVENT DATE: 20250427
